FAERS Safety Report 6030360-X (Version None)
Quarter: 2009Q1

REPORT INFORMATION
  Report Type: 
  Country: None (occurrence: None)
  Receive Date: 20090107
  Receipt Date: 20080723
  Transmission Date: 20090719
  Serious: No
  Sender: FDA-Public Use
  Company Number: US-BAYER-200813196BCC

PATIENT
  Age: 30 Year
  Sex: Female
  Weight: 98 kg

DRUGS (2)
  1. ALEVE (CAPLET) [Suspect]
     Indication: MIGRAINE
     Dosage: UNIT DOSE: 220 MG
     Dates: start: 20080723
  2. ALEVE (CAPLET) [Suspect]
     Dosage: UNIT DOSE: 220 MG
     Dates: start: 20080723

REACTIONS (1)
  - NAUSEA [None]
